FAERS Safety Report 22603509 (Version 1)
Quarter: 2023Q2

REPORT INFORMATION
  Report Type: Report from Study
  Country: IT (occurrence: IT)
  Receive Date: 20230615
  Receipt Date: 20230615
  Transmission Date: 20230722
  Serious: Yes (Other)
  Sender: FDA-Public Use
  Company Number: IT-AUROBINDO-AUR-APL-2023-041923

PATIENT
  Age: 2 Year
  Sex: Male

DRUGS (10)
  1. LEVETIRACETAM [Suspect]
     Active Substance: LEVETIRACETAM
     Indication: Epilepsy of infancy with migrating focal seizures
     Dosage: UNK
     Route: 065
  2. BIOTIN [Suspect]
     Active Substance: BIOTIN
     Indication: Epilepsy of infancy with migrating focal seizures
     Dosage: UNK
     Route: 065
  3. CARBAMAZEPINE [Suspect]
     Active Substance: CARBAMAZEPINE
     Indication: Epilepsy of infancy with migrating focal seizures
     Dosage: UNK
     Route: 065
  4. CLONAZEPAM [Suspect]
     Active Substance: CLONAZEPAM
     Indication: Epilepsy of infancy with migrating focal seizures
     Dosage: UNK
     Route: 065
  5. LEUCOVORIN [Suspect]
     Active Substance: LEUCOVORIN
     Indication: Epilepsy of infancy with migrating focal seizures
     Dosage: UNK
     Route: 065
  6. PHENOBARBITAL [Suspect]
     Active Substance: PHENOBARBITAL
     Indication: Epilepsy of infancy with migrating focal seizures
     Dosage: UNK
     Route: 065
  7. POTASSIUM BROMIDE [Suspect]
     Active Substance: POTASSIUM BROMIDE
     Indication: Epilepsy of infancy with migrating focal seizures
     Dosage: UNK
     Route: 065
  8. PYRIDOXINE [Suspect]
     Active Substance: PYRIDOXINE
     Indication: Epilepsy of infancy with migrating focal seizures
     Dosage: UNK
     Route: 065
  9. PHENYTOIN [Suspect]
     Active Substance: PHENYTOIN
     Indication: Epilepsy of infancy with migrating focal seizures
     Dosage: UNK
     Route: 065
  10. VIGABATRIN [Suspect]
     Active Substance: VIGABATRIN
     Indication: Epilepsy of infancy with migrating focal seizures
     Dosage: UNK
     Route: 065

REACTIONS (1)
  - Drug ineffective [Unknown]
